FAERS Safety Report 11716553 (Version 2)
Quarter: 2015Q4

REPORT INFORMATION
  Report Type: Spontaneous
  Country: US (occurrence: US)
  Receive Date: 20151104
  Receipt Date: 20151110
  Transmission Date: 20160304
  Serious: No
  Sender: FDA-Public Use
  Company Number: US-ELI_LILLY_AND_COMPANY-US201101007573

PATIENT
  Age: 67 Year
  Sex: Female

DRUGS (13)
  1. FORTEO [Suspect]
     Active Substance: TERIPARATIDE
     Dosage: 20 UG, QD
  2. BENICAR [Concomitant]
     Active Substance: OLMESARTAN MEDOXOMIL
  3. LOPRESSOR [Concomitant]
     Active Substance: METOPROLOL TARTRATE
  4. CALTRATE [Concomitant]
     Active Substance: CALCIUM CARBONATE
  5. FORTEO [Suspect]
     Active Substance: TERIPARATIDE
     Dosage: 20 UG, QD
  6. FORTEO [Suspect]
     Active Substance: TERIPARATIDE
     Dosage: 20 UG, QD
  7. VITAMIN D [Concomitant]
     Active Substance: CHOLECALCIFEROL
  8. FORTEO [Suspect]
     Active Substance: TERIPARATIDE
     Dosage: 20 UG, QD
  9. OXYCODONE [Concomitant]
     Active Substance: OXYCODONE
  10. POTASSIUM [Concomitant]
     Active Substance: POTASSIUM
  11. FORTEO [Suspect]
     Active Substance: TERIPARATIDE
     Dosage: 20 UG, QD
  12. MULTIVITAMIN [Concomitant]
     Active Substance: VITAMINS
  13. FORTEO [Suspect]
     Active Substance: TERIPARATIDE
     Indication: OSTEOPOROSIS
     Dosage: 20 UG, DAILY (1/D)
     Route: 065
     Dates: start: 20110126

REACTIONS (18)
  - Discomfort [Unknown]
  - Contusion [Unknown]
  - Fall [Unknown]
  - Balance disorder [Unknown]
  - Injection site rash [Recovering/Resolving]
  - Pain in extremity [Unknown]
  - Muscle tightness [Unknown]
  - Musculoskeletal stiffness [Unknown]
  - Fall [Unknown]
  - Limb discomfort [Unknown]
  - Injection site bruising [Recovered/Resolved]
  - Weight bearing difficulty [Recovered/Resolved]
  - Wrist fracture [Unknown]
  - Blood pressure increased [Not Recovered/Not Resolved]
  - Peripheral swelling [Unknown]
  - Arthritis [Unknown]
  - Arthralgia [Recovered/Resolved]
  - Pain in extremity [Unknown]

NARRATIVE: CASE EVENT DATE: 20110126
